FAERS Safety Report 5707580-4 (Version None)
Quarter: 2008Q2

REPORT INFORMATION
  Report Type: 
  Country: None (occurrence: None)
  Receive Date: 20080416
  Receipt Date: 20080409
  Transmission Date: 20081010
  Serious: Yes (Death, Other)
  Sender: FDA-Public Use
  Company Number: US-PFIZER INC-2008011293

PATIENT

DRUGS (1)
  1. GLUCOTROL XL [Suspect]

REACTIONS (3)
  - AMMONIA INCREASED [None]
  - CATATONIA [None]
  - DEATH [None]
